FAERS Safety Report 9360191 (Version 2)
Quarter: 2013Q2

REPORT INFORMATION
  Report Type: Report from Study
  Country: HU (occurrence: HU)
  Receive Date: 20130621
  Receipt Date: 20130630
  Transmission Date: 20140414
  Serious: Yes (Hospitalization)
  Sender: FDA-Public Use
  Company Number: HU-ROCHE-1238223

PATIENT
  Sex: Female

DRUGS (3)
  1. XELODA [Suspect]
     Indication: GASTRIC CANCER
     Route: 048
     Dates: start: 20130412, end: 201306
  2. XELODA [Suspect]
     Route: 048
     Dates: start: 201306
  3. CISPLATIN [Concomitant]
     Indication: GASTRIC CANCER

REACTIONS (3)
  - Dizziness [Unknown]
  - Asthenia [Unknown]
  - Nausea [Not Recovered/Not Resolved]
